FAERS Safety Report 9423864 (Version 2)
Quarter: 2013Q3

REPORT INFORMATION
  Report Type: Spontaneous
  Country: US (occurrence: US)
  Receive Date: 20130729
  Receipt Date: 20130822
  Transmission Date: 20140515
  Serious: Yes (Other)
  Sender: FDA-Public Use
  Company Number: US-BIOGENIDEC-2013BI067281

PATIENT
  Age: 45 Year
  Sex: Female

DRUGS (19)
  1. TECFIDERA [Suspect]
     Indication: MULTIPLE SCLEROSIS
     Route: 048
     Dates: start: 20130524, end: 20130531
  2. TECFIDERA [Suspect]
     Indication: MULTIPLE SCLEROSIS
     Route: 048
     Dates: start: 20130601
  3. CLARITEN [Concomitant]
  4. DESYREL [Concomitant]
  5. FLORECET [Concomitant]
  6. FLEXERIL [Concomitant]
  7. LOPRESSOR [Concomitant]
  8. KEPPRA [Concomitant]
  9. LORTAB [Concomitant]
  10. NEURONTIN [Concomitant]
  11. NUVIGIL [Concomitant]
  12. OSCAL [Concomitant]
  13. PREMARIN [Concomitant]
  14. PRILOSEC [Concomitant]
  15. PROZAC [Concomitant]
  16. REQUIP [Concomitant]
  17. SYNTHROID [Concomitant]
  18. TORODAL [Concomitant]
  19. TRAMADOL [Concomitant]

REACTIONS (1)
  - Convulsion [Recovered/Resolved]
